FAERS Safety Report 9717468 (Version 1)
Quarter: 2013Q4

REPORT INFORMATION
  Report Type: Spontaneous
  Country: US (occurrence: US)
  Receive Date: 20131127
  Receipt Date: 20131127
  Transmission Date: 20140711
  Serious: Yes (Other)
  Sender: FDA-Public Use
  Company Number: US-GILEAD-2009-0019736

PATIENT
  Sex: Male

DRUGS (10)
  1. CELEBREX [Concomitant]
  2. KCL [Concomitant]
  3. LETAIRIS [Suspect]
     Route: 048
     Dates: start: 20081217
  4. LETAIRIS [Suspect]
     Route: 048
     Dates: start: 20080926, end: 20081216
  5. REVATIO [Concomitant]
  6. COREG [Concomitant]
  7. LANOXIN [Concomitant]
  8. ADVAIR 100/50 [Concomitant]
  9. LASIX [Concomitant]
  10. WARFARIN [Concomitant]

REACTIONS (1)
  - Oedema peripheral [Not Recovered/Not Resolved]
